FAERS Safety Report 19149656 (Version 2)
Quarter: 2021Q2

REPORT INFORMATION
  Report Type: Spontaneous
  Country: NZ (occurrence: NZ)
  Receive Date: 20210417
  Receipt Date: 20210504
  Transmission Date: 20210717
  Serious: Yes (Other)
  Sender: FDA-Public Use
  Company Number: NZ-ACCORD-222586

PATIENT
  Age: 58 Year
  Sex: Male

DRUGS (1)
  1. METHOTREXATE. [Suspect]
     Active Substance: METHOTREXATE
     Indication: AUTOIMMUNE RETINOPATHY
     Dosage: INTRAVITREAL, LEFT EYE
     Route: 031

REACTIONS (4)
  - Condition aggravated [Recovered/Resolved]
  - Retinopathy [Recovered/Resolved]
  - Syphilis [Recovered/Resolved]
  - Infective uveitis [Recovered/Resolved]
